FAERS Safety Report 16723043 (Version 2)
Quarter: 2020Q1

REPORT INFORMATION
  Report Type: Report from Study
  Country: None (occurrence: US)
  Receive Date: 20190821
  Receipt Date: 20200317
  Transmission Date: 20200409
  Serious: Yes (Hospitalization)
  Sender: FDA-Public Use
  Company Number: US-ABBVIE-19K-163-2710872-00

PATIENT
  Sex: Female
  Weight: 52.21 kg

DRUGS (1)
  1. HUMIRA [Suspect]
     Active Substance: ADALIMUMAB
     Indication: PSORIATIC ARTHROPATHY
     Route: 058
     Dates: start: 201610, end: 20190829

REACTIONS (8)
  - Animal scratch [Recovering/Resolving]
  - Dry mouth [Not Recovered/Not Resolved]
  - Wound infection [Recovering/Resolving]
  - Tardive dyskinesia [Not Recovered/Not Resolved]
  - Tooth fracture [Recovered/Resolved]
  - Loose tooth [Not Recovered/Not Resolved]
  - Breath odour [Not Recovered/Not Resolved]
  - Dental caries [Not Recovered/Not Resolved]

NARRATIVE: CASE EVENT DATE: 2018
